FAERS Safety Report 25087780 (Version 1)
Quarter: 2025Q1

REPORT INFORMATION
  Report Type: Spontaneous
  Country: CN (occurrence: CN)
  Receive Date: 20250318
  Receipt Date: 20250318
  Transmission Date: 20250408
  Serious: Yes (Other)
  Sender: NOVARTIS
  Company Number: CN-002147023-NVSC2025CN041977

PATIENT
  Age: 65 Year
  Sex: Male
  Weight: 65 kg

DRUGS (2)
  1. GLIVEC [Suspect]
     Active Substance: IMATINIB MESYLATE
     Indication: Gastrointestinal carcinoma
     Dosage: 4 DOSAGE FORM, QD (4 TABLET)
     Route: 048
     Dates: start: 20250217, end: 20250309
  2. GLIVEC [Suspect]
     Active Substance: IMATINIB MESYLATE
     Indication: Symptomatic treatment

REACTIONS (8)
  - Hypersensitivity [Recovering/Resolving]
  - Swelling of eyelid [Recovering/Resolving]
  - Pallor [Recovering/Resolving]
  - Skin exfoliation [Recovering/Resolving]
  - Skin haemorrhage [Recovering/Resolving]
  - Diarrhoea [Recovering/Resolving]
  - Nausea [Recovering/Resolving]
  - Vomiting [Recovering/Resolving]

NARRATIVE: CASE EVENT DATE: 20250308
